FAERS Safety Report 12205803 (Version 1)
Quarter: 2016Q1

REPORT INFORMATION
  Report Type: Spontaneous
  Country: US (occurrence: US)
  Receive Date: 20160323
  Receipt Date: 20160323
  Transmission Date: 20160526
  Serious: No
  Sender: FDA-Public Use
  Company Number: US-WARNER CHILCOTT, LLC-1049540

PATIENT
  Age: 69 Year
  Sex: Female

DRUGS (1)
  1. ESTRACE [Suspect]
     Active Substance: ESTRADIOL
     Indication: URINARY INCONTINENCE
     Route: 067
     Dates: start: 20150610, end: 20150711

REACTIONS (4)
  - Alopecia [Recovering/Resolving]
  - Headache [Recovered/Resolved]
  - Product use issue [Recovered/Resolved]
  - Dizziness [Recovered/Resolved]
